FAERS Safety Report 24437161 (Version 1)
Quarter: 2024Q4

REPORT INFORMATION
  Report Type: Spontaneous
  Country: IN (occurrence: IN)
  Receive Date: 20241015
  Receipt Date: 20241015
  Transmission Date: 20250115
  Serious: Yes (Death)
  Sender: PFIZER
  Company Number: IN-PFIZER INC-202400023209

PATIENT
  Age: 77 Year
  Sex: Female

DRUGS (1)
  1. LORLATINIB [Suspect]
     Active Substance: LORLATINIB
     Indication: Lung neoplasm malignant
     Dosage: 100 MG, CYCLIC (3 DAYS FOLLOWED BY ONE DAY BREAK FOR ONE MONTH)
     Route: 048
     Dates: start: 20221118

REACTIONS (2)
  - Death [Fatal]
  - Off label use [Unknown]

NARRATIVE: CASE EVENT DATE: 20221118
